FAERS Safety Report 14577981 (Version 1)
Quarter: 2018Q1

REPORT INFORMATION
  Report Type: Spontaneous
  Country: US (occurrence: US)
  Receive Date: 20180227
  Receipt Date: 20180227
  Transmission Date: 20180509
  Serious: No
  Sender: FDA-Public Use
  Company Number: US-009507513-1802USA011470

PATIENT
  Age: 77 Year
  Sex: Female

DRUGS (2)
  1. SINEMET [Suspect]
     Active Substance: CARBIDOPA\LEVODOPA
     Dosage: 8 TIMES A DAY
     Route: 048
  2. SINEMET [Suspect]
     Active Substance: CARBIDOPA\LEVODOPA
     Indication: PARKINSON^S DISEASE
     Dosage: UNK, BID
     Route: 048

REACTIONS (6)
  - Personality change [Unknown]
  - Drug intolerance [Unknown]
  - Muscle spasms [Unknown]
  - Tremor [Unknown]
  - Palpitations [Unknown]
  - Inappropriate schedule of drug administration [Unknown]
